FAERS Safety Report 11413918 (Version 1)
Quarter: 2015Q3

REPORT INFORMATION
  Report Type: Spontaneous
  Country: IN (occurrence: IN)
  Receive Date: 20150824
  Receipt Date: 20150824
  Transmission Date: 20151125
  Serious: Yes (Other)
  Sender: FDA-Public Use
  Company Number: IN-GLAXOSMITHKLINE-IN2015GSK120999

PATIENT
  Age: 18 Year
  Sex: Female

DRUGS (1)
  1. QUETIAPINE [Suspect]
     Active Substance: QUETIAPINE
     Indication: PRODUCT USED FOR UNKNOWN INDICATION
     Dosage: 100 MG, BID

REACTIONS (14)
  - Drug reaction with eosinophilia and systemic symptoms [Recovered/Resolved]
  - Scab [Unknown]
  - Haemorrhagic disorder [Unknown]
  - Haematemesis [Unknown]
  - Lymphadenopathy [Recovered/Resolved]
  - Dermatitis exfoliative [Unknown]
  - Asthenia [Unknown]
  - Pyrexia [Unknown]
  - Pruritus [Unknown]
  - Abdominal pain [Unknown]
  - Gingival bleeding [Unknown]
  - Rash [Recovered/Resolved]
  - Haematochezia [Unknown]
  - Erythema [Unknown]
